FAERS Safety Report 12249762 (Version 2)
Quarter: 2016Q2

REPORT INFORMATION
  Report Type: Report from Study
  Country: US (occurrence: US)
  Receive Date: 20160408
  Receipt Date: 20160412
  Transmission Date: 20160815
  Serious: Yes (Congenital Anomaly, Other)
  Sender: FDA-Public Use
  Company Number: US-JNJFOC-20160403677

PATIENT
  Age: 0 Day
  Sex: Male
  Weight: 3.03 kg

DRUGS (10)
  1. TRUVADA [Suspect]
     Active Substance: EMTRICITABINE\TENOFOVIR DISOPROXIL FUMARATE
     Indication: HIV INFECTION
     Dosage: MOTHER DOSING
     Route: 064
     Dates: start: 20160128
  2. DAPSONE. [Concomitant]
     Active Substance: DAPSONE
     Route: 064
  3. FERROUS SULFATE. [Concomitant]
     Active Substance: FERROUS SULFATE
     Route: 064
  4. RETROVIR [Suspect]
     Active Substance: ZIDOVUDINE
     Indication: HIV INFECTION
     Dosage: TOTAL DAILY DOSE 2 MG/KG/HR; MOTHER DOSING
     Route: 064
     Dates: start: 20160311, end: 20160311
  5. PREZISTA [Suspect]
     Active Substance: DARUNAVIR ETHANOLATE
     Indication: HIV INFECTION
     Dosage: MOTHER DOSING
     Route: 064
     Dates: start: 20160128
  6. PREZISTA [Suspect]
     Active Substance: DARUNAVIR ETHANOLATE
     Indication: HIV INFECTION
     Dosage: MOTHER DOSING
     Route: 064
     Dates: start: 20150715, end: 20160128
  7. TIVICAY [Suspect]
     Active Substance: DOLUTEGRAVIR SODIUM
     Indication: HIV INFECTION
     Dosage: MOTHER DOSING
     Route: 064
     Dates: start: 20150715
  8. NORVIR [Suspect]
     Active Substance: RITONAVIR
     Indication: HIV INFECTION
     Dosage: MOTHER DOSING
     Route: 064
     Dates: start: 20150715
  9. RETROVIR [Suspect]
     Active Substance: ZIDOVUDINE
     Indication: HIV INFECTION
     Dosage: TOTAL DAILY DOSE 2 MG/KG/HR; MOTHER DOSING
     Route: 064
     Dates: start: 20160311, end: 20160311
  10. EDURANT [Suspect]
     Active Substance: RILPIVIRINE HYDROCHLORIDE
     Indication: HIV INFECTION
     Dosage: MOTHER DOSING
     Route: 064
     Dates: start: 20150715, end: 20160121

REACTIONS (3)
  - Hydroureter [Unknown]
  - Foetal exposure during pregnancy [Recovered/Resolved]
  - Congenital hydronephrosis [Unknown]

NARRATIVE: CASE EVENT DATE: 20160311
